FAERS Safety Report 13093507 (Version 1)
Quarter: 2017Q1

REPORT INFORMATION
  Report Type: Spontaneous
  Country: GB (occurrence: GB)
  Receive Date: 20170106
  Receipt Date: 20170106
  Transmission Date: 20170428
  Serious: Yes (Hospitalization, Other)
  Sender: FDA-Public Use
  Company Number: GB-ASTRAZENECA-2016SF38317

PATIENT
  Age: 74 Year
  Sex: Male
  Weight: 100 kg

DRUGS (7)
  1. CANDESARTAN [Concomitant]
     Active Substance: CANDESARTAN
  2. SUKKARTO [Concomitant]
     Active Substance: METFORMIN HYDROCHLORIDE
  3. INSUMAN [Concomitant]
     Active Substance: INSULIN HUMAN
  4. BYDUREON [Suspect]
     Active Substance: EXENATIDE
     Indication: TYPE 2 DIABETES MELLITUS
     Dosage: 1.2MG UNKNOWN
     Route: 058
     Dates: start: 20160720, end: 20160918
  5. SIMVASTATIN. [Concomitant]
     Active Substance: SIMVASTATIN
  6. ALLOPURINOL. [Concomitant]
     Active Substance: ALLOPURINOL
  7. CIPROFIBRATE [Concomitant]
     Active Substance: CIPROFIBRATE

REACTIONS (6)
  - Abdominal discomfort [Unknown]
  - Jaundice cholestatic [Recovering/Resolving]
  - Pancreatic neuroendocrine tumour [Not Recovered/Not Resolved]
  - Abnormal loss of weight [Unknown]
  - Nausea [Unknown]
  - Malaise [Not Recovered/Not Resolved]
